FAERS Safety Report 5852556-X (Version None)
Quarter: 2008Q3

REPORT INFORMATION
  Report Type: 
  Country: None (occurrence: None)
  Receive Date: 20080820
  Receipt Date: 20080820
  Transmission Date: 20090109
  Serious: Yes (Hospitalization)
  Sender: FDA-Public Use
  Company Number: None

PATIENT
  Age: 78 Year
  Sex: Male
  Weight: 80.7403 kg

DRUGS (1)
  1. CIPROFLOXACIN [Suspect]
     Dosage: 1 TAB TWICE PER DAY
     Route: 048
     Dates: start: 20080809, end: 20080814

REACTIONS (3)
  - FALL [None]
  - MYALGIA [None]
  - NUCLEAR MAGNETIC RESONANCE IMAGING ABNORMAL [None]
